FAERS Safety Report 26131825 (Version 1)
Quarter: 2025Q4

REPORT INFORMATION
  Report Type: Spontaneous
  Country: US (occurrence: US)
  Receive Date: 20251208
  Receipt Date: 20251208
  Transmission Date: 20260117
  Serious: Yes (Other)
  Sender: NOVARTIS
  Company Number: US-002147023-NVSC2025US187432

PATIENT
  Sex: Male
  Weight: 78.912 kg

DRUGS (2)
  1. EVEROLIMUS [Suspect]
     Active Substance: EVEROLIMUS
     Indication: Product used for unknown indication
     Dosage: UNK
     Route: 065
  2. LENVIMA [Concomitant]
     Active Substance: LENVATINIB
     Indication: Renal cancer
     Dosage: 18 MG, QD (18MG(1-10MG/2-4MG) 5DAY
     Route: 048

REACTIONS (9)
  - Optic neuritis [Unknown]
  - Cough [Unknown]
  - Gastrointestinal disorder [Unknown]
  - Diarrhoea [Unknown]
  - Nausea [Unknown]
  - Oral bacterial infection [Unknown]
  - Tooth abscess [Unknown]
  - Pain [Unknown]
  - Drug withdrawal syndrome [Unknown]
